FAERS Safety Report 9961937 (Version 1)
Quarter: 2014Q1

REPORT INFORMATION
  Report Type: Spontaneous
  Country: US (occurrence: None)
  Receive Date: 20140304
  Receipt Date: 20140304
  Transmission Date: 20141002
  Serious: Yes (Hospitalization)
  Sender: FDA-Public Use
  Company Number: None

PATIENT
  Age: 82 Year
  Sex: Male

DRUGS (7)
  1. LEVETIRACETAM [Suspect]
     Indication: PNEUMONIA
     Dates: start: 20131125, end: 20131201
  2. ASPIRIN [Concomitant]
  3. DUTASTERIDE [Concomitant]
  4. INSULIN GLARGINE [Concomitant]
  5. NAPROSYN [Concomitant]
  6. METFORMIN [Concomitant]
  7. MULTIVITAMIN [Concomitant]

REACTIONS (5)
  - Pneumonia [None]
  - Dehydration [None]
  - Delirium [None]
  - Condition aggravated [None]
  - Blood glucose increased [None]
